FAERS Safety Report 20040559 (Version 1)
Quarter: 2021Q4

REPORT INFORMATION
  Report Type: Spontaneous
  Country: US (occurrence: None)
  Receive Date: 20211105
  Receipt Date: 20211105
  Transmission Date: 20220304
  Serious: No
  Sender: FDA-Public Use
  Company Number: None

PATIENT
  Age: 63 Year
  Sex: Male

DRUGS (1)
  1. COPAXONE [Suspect]
     Active Substance: GLATIRAMER ACETATE
     Dosage: FREQUENCY : DAILY;?
     Route: 058
     Dates: start: 2021

REACTIONS (1)
  - Gastric bypass [None]

NARRATIVE: CASE EVENT DATE: 20211105
